FAERS Safety Report 10182527 (Version 1)
Quarter: 2014Q2

REPORT INFORMATION
  Report Type: Spontaneous
  Country: US (occurrence: None)
  Receive Date: 20140519
  Receipt Date: 20140519
  Transmission Date: 20141212
  Serious: No
  Sender: FDA-Public Use
  Company Number: None

PATIENT
  Age: 22 Year
  Sex: Male

DRUGS (1)
  1. INVEGA [Suspect]
     Indication: MENTAL DISORDER
     Dosage: INVEGA ( 1 INJECTION) 117MG EVERY 4 WEEKS INTRAMUSCULAR
     Route: 030

REACTIONS (1)
  - Blood prolactin increased [None]
